FAERS Safety Report 5622051-1 (Version None)
Quarter: 2008Q1

REPORT INFORMATION
  Report Type: 
  Country: None (occurrence: None)
  Receive Date: 20080211
  Receipt Date: 20080206
  Transmission Date: 20080703
  Serious: Yes (Hospitalization)
  Sender: FDA-Public Use
  Company Number: JP-BRISTOL-MYERS SQUIBB COMPANY-14026728

PATIENT
  Age: 66 Year
  Sex: Female
  Weight: 39 kg

DRUGS (17)
  1. ABATACEPT [Suspect]
     Indication: RHEUMATOID ARTHRITIS
     Route: 041
     Dates: start: 20070724, end: 20071103
  2. PREDNISOLONE [Concomitant]
     Indication: RHEUMATOID ARTHRITIS
     Dosage: (3MG/BID)UNK-10DEC07;(5MG/BID)11DEC07-30DEC07;(20MG/BID)31DEC07-14JAN08
     Route: 048
     Dates: end: 20071210
  3. KETOPROFEN [Concomitant]
     Indication: RHEUMATOID ARTHRITIS
     Dosage: ALSO MOHRUS TAPE L ADMINISTERED; PRN; ROUTE - TOPICAL; UNK-28DEC07
     Route: 061
     Dates: start: 20070612, end: 20071228
  4. LOXONIN [Concomitant]
     Indication: RHEUMATOID ARTHRITIS
     Route: 048
     Dates: end: 20071228
  5. DEPAS [Concomitant]
     Indication: INSOMNIA
     Route: 048
     Dates: end: 20071227
  6. PLETAL [Concomitant]
     Indication: CEREBRAL INFARCTION
     Route: 048
     Dates: end: 20071228
  7. NU-LOTAN [Concomitant]
     Indication: HYPERTENSION
     Route: 048
     Dates: end: 20070831
  8. FERROMIA [Concomitant]
     Indication: IRON DEFICIENCY ANAEMIA
     Route: 048
     Dates: end: 20071228
  9. CYANOCOBALAMIN [Concomitant]
     Indication: NEUROPATHY PERIPHERAL
     Dosage: UNK-28DECO7;01JAN2008-CONTINUE
  10. MYSLEE [Concomitant]
     Indication: INSOMNIA
     Route: 048
     Dates: end: 20071227
  11. ALENDRONATE SODIUM [Concomitant]
     Indication: OSTEOPOROSIS
     Route: 048
     Dates: start: 20070612, end: 20071210
  12. SELBEX [Concomitant]
     Indication: PROPHYLAXIS
     Route: 048
     Dates: start: 20070612
  13. SANCOBA [Concomitant]
     Indication: ASTHENOPIA
     Dosage: TID
     Route: 047
     Dates: end: 20071025
  14. OMEPRAL [Concomitant]
     Indication: PROPHYLAXIS
     Route: 048
     Dates: end: 20071227
  15. GASTER D [Concomitant]
     Indication: PROPHYLAXIS
     Route: 048
     Dates: end: 20071228
  16. BONALON [Concomitant]
     Indication: OSTEOPOROSIS
     Route: 048
     Dates: start: 20071217
  17. ASPIRIN [Concomitant]
     Route: 048

REACTIONS (1)
  - NEUROPATHY PERIPHERAL [None]
